FAERS Safety Report 6509165-9 (Version None)
Quarter: 2009Q4

REPORT INFORMATION
  Report Type: 
  Country: None (occurrence: None)
  Receive Date: 20091221
  Receipt Date: 20091218
  Transmission Date: 20100525
  Serious: Yes (Hospitalization)
  Sender: FDA-Public Use
  Company Number: JP-ABBOTT-09P-087-0586785-00

PATIENT
  Sex: Male
  Weight: 52.4 kg

DRUGS (20)
  1. HUMIRA [Suspect]
     Indication: RHEUMATOID ARTHRITIS
     Route: 058
     Dates: start: 20090604, end: 20090702
  2. ISONIAZID [Suspect]
     Indication: PROPHYLAXIS
     Dosage: DAILY
     Route: 048
     Dates: start: 20090513, end: 20090702
  3. ISONIAZID [Suspect]
     Route: 048
     Dates: start: 20090703, end: 20090812
  4. METHOTREXATE [Concomitant]
     Indication: RHEUMATOID ARTHRITIS
     Route: 048
     Dates: end: 20090812
  5. PREDNISOLONE [Concomitant]
     Indication: RHEUMATOID ARTHRITIS
     Dosage: DAILY
     Route: 048
     Dates: start: 20090604, end: 20090617
  6. PREDNISOLONE [Concomitant]
     Dosage: DAILY
     Route: 048
     Dates: start: 20090618, end: 20090701
  7. PREDNISOLONE [Concomitant]
     Dosage: DAILY
     Route: 048
     Dates: start: 20090702, end: 20090804
  8. FOLIC ACID [Concomitant]
     Indication: PROPHYLAXIS
     Route: 048
     Dates: end: 20090812
  9. FOLIC ACID [Concomitant]
     Indication: ADVERSE EVENT
  10. SULFAMETHOXAZOLE AND TRIMETHOPRIM [Concomitant]
     Indication: ANTIFUNGAL PROPHYLAXIS
     Route: 048
     Dates: start: 20090513, end: 20090729
  11. ALFACALCIDOL [Concomitant]
     Indication: OSTEOPOROSIS PROPHYLAXIS
     Dosage: DAILY
     Route: 048
  12. LOXOPROFEN SODIUM [Concomitant]
     Indication: RHEUMATOID ARTHRITIS
     Route: 048
  13. SODIUM GUALENATE HYDRATE / L-GLUTAMINE [Concomitant]
     Indication: GASTRIC DISORDER
     Route: 048
  14. SODIUM GUALENATE HYDRATE / L-GLUTAMINE [Concomitant]
     Indication: PROPHYLAXIS
  15. ZOLPIDEM TARTRATE [Concomitant]
     Indication: PROPHYLAXIS
     Dosage: DAILY
     Route: 048
  16. ZOLPIDEM TARTRATE [Concomitant]
     Indication: INSOMNIA
  17. VALSARTAN [Concomitant]
     Indication: PROPHYLAXIS
     Dosage: DAILY
     Route: 048
     Dates: start: 20090604
  18. VALSARTAN [Concomitant]
     Indication: HYPERTENSION
  19. ISONIAZID [Concomitant]
     Indication: DRUG USE FOR UNKNOWN INDICATION
     Dosage: DAILY
     Dates: start: 20090513, end: 20090701
  20. ISONIAZID [Concomitant]
     Dosage: DAILY
     Dates: start: 20090702

REACTIONS (2)
  - LIVER DISORDER [None]
  - TOXIC SKIN ERUPTION [None]
